FAERS Safety Report 10085142 (Version 1)
Quarter: 2014Q2

REPORT INFORMATION
  Report Type: Spontaneous
  Country: US (occurrence: None)
  Receive Date: 20140409
  Receipt Date: 20140409
  Transmission Date: 20141212
  Serious: Yes (Hospitalization)
  Sender: FDA-Public Use
  Company Number: SP07180

PATIENT
  Sex: Female

DRUGS (3)
  1. OSMOPREP [Suspect]
     Indication: BOWEL PREPARATION
     Route: 048
     Dates: start: 20110920
  2. ACE INHIBITOR [Concomitant]
  3. DIURETIC [Concomitant]

REACTIONS (1)
  - Nephropathy [None]
